FAERS Safety Report 12855527 (Version 3)
Quarter: 2016Q4

REPORT INFORMATION
  Report Type: Report from Study
  Country: MX (occurrence: MX)
  Receive Date: 20161017
  Receipt Date: 20161022
  Transmission Date: 20170207
  Serious: Yes (Life-Threatening, Hospitalization)
  Sender: FDA-Public Use
  Company Number: MX-B.I. PHARMACEUTICALS,INC./RIDGEFIELD-2016-BI-36242BI

PATIENT
  Age: 45 Year
  Sex: Female
  Weight: 59 kg

DRUGS (8)
  1. BLINDED LINAGLIPTIN [Suspect]
     Active Substance: LINAGLIPTIN
     Route: 048
     Dates: start: 20160627, end: 20160808
  2. LOSARTAN. [Concomitant]
     Active Substance: LOSARTAN
     Indication: HYPERTENSION
     Route: 048
     Dates: start: 20140101
  3. BLINDED LINAGLIPTIN [Suspect]
     Active Substance: LINAGLIPTIN
     Indication: TYPE 2 DIABETES MELLITUS
     Route: 048
     Dates: start: 20150706, end: 20160602
  4. AMLODIPINE [Concomitant]
     Active Substance: AMLODIPINE BESYLATE
     Indication: HYPERTENSION
     Route: 048
     Dates: start: 201401
  5. HYDROCHLOROTHIAZIDE. [Concomitant]
     Active Substance: HYDROCHLOROTHIAZIDE
     Indication: DIURETIC THERAPY
     Route: 048
     Dates: start: 20140101
  6. PRAZOCIN [Concomitant]
     Indication: HYPERTENSION
     Route: 048
     Dates: start: 20140101
  7. METFORMIN [Concomitant]
     Active Substance: METFORMIN HYDROCHLORIDE
     Dosage: DAILY DOSE: [8]50MG/DAY
     Dates: start: 20140101, end: 20150302
  8. METFORMIN [Concomitant]
     Active Substance: METFORMIN HYDROCHLORIDE
     Indication: DIABETES MELLITUS
     Route: 048
     Dates: start: 2014, end: 20160602

REACTIONS (4)
  - Glomerular filtration rate decreased [Unknown]
  - Renal failure [Not Recovered/Not Resolved]
  - Dialysis [Not Recovered/Not Resolved]
  - Glomerular filtration rate decreased [Unknown]

NARRATIVE: CASE EVENT DATE: 20160315
